FAERS Safety Report 6554513-7 (Version None)
Quarter: 2010Q1

REPORT INFORMATION
  Report Type: 
  Country: None (occurrence: None)
  Receive Date: 20100127
  Receipt Date: 20100114
  Transmission Date: 20100710
  Serious: Yes (Other)
  Sender: FDA-Public Use
  Company Number: PHEH2008US00489

PATIENT
  Sex: Female
  Weight: 81.633 kg

DRUGS (24)
  1. COMBIPATCH [Suspect]
     Indication: MENOPAUSE
     Dosage: 0.5 MG, UNK
     Route: 062
     Dates: start: 20021001, end: 20030101
  2. PREMPRO [Suspect]
  3. PREMARIN [Suspect]
  4. ESTRADIOL [Suspect]
     Indication: MENOPAUSE
     Dosage: 0.5 MG, UNK
     Route: 062
     Dates: start: 19930721, end: 20051001
  5. MEDROXYPROGESTERONE [Suspect]
  6. PROVERA [Suspect]
     Indication: MENOPAUSE
     Dosage: 10 MG, UNK
     Dates: start: 19830101, end: 19830101
  7. PROVERA [Suspect]
     Dosage: 2.5 MG, UNK
     Dates: start: 19930721, end: 20051001
  8. ESTRACE [Suspect]
     Indication: MENOPAUSE
     Dosage: 1 MG, UNK
     Dates: start: 19930721, end: 19950101
  9. NAPROSYN [Concomitant]
  10. METOPROLOL [Concomitant]
  11. LOVASTATIN [Concomitant]
  12. HYDROCHLOROTHIAZIDE [Concomitant]
  13. PRILOSEC [Concomitant]
  14. ELAVIL [Concomitant]
  15. CORTISONE [Concomitant]
  16. ASPIRIN [Concomitant]
  17. CHONDROITIN SULFATE [Concomitant]
  18. M.V.I. [Concomitant]
  19. TYLENOL [Concomitant]
  20. AMITRIPTYLINE HCL [Concomitant]
  21. FOLTX [Concomitant]
     Indication: CARDIAC DISORDER
  22. LOVAZA [Concomitant]
  23. MERIDIA [Concomitant]
     Dosage: 10 MG, UNK
     Route: 048
  24. MERIDIA [Concomitant]
     Dosage: 15 MG, UNK
     Route: 048

REACTIONS (58)
  - ACTINIC KERATOSIS [None]
  - ATELECTASIS [None]
  - BACK PAIN [None]
  - BIOPSY [None]
  - BREAST CANCER [None]
  - BREAST DISORDER [None]
  - BREAST LUMP REMOVAL [None]
  - BREAST NEOPLASM [None]
  - BRONCHITIS [None]
  - BURNING SENSATION [None]
  - C-REACTIVE PROTEIN INCREASED [None]
  - CATHETER PLACEMENT [None]
  - CERVICITIS [None]
  - CERVIX DISORDER [None]
  - COLONIC POLYP [None]
  - COLONOSCOPY [None]
  - CONSTIPATION [None]
  - CONTUSION [None]
  - COUGH [None]
  - DYSURIA [None]
  - FALL [None]
  - HAEMATOCHEZIA [None]
  - HAEMORRHOIDS [None]
  - HEART RATE IRREGULAR [None]
  - HERNIA [None]
  - HERPES ZOSTER [None]
  - HYPERCHOLESTEROLAEMIA [None]
  - HYPERLIPIDAEMIA [None]
  - HYPERTENSION [None]
  - INDURATION [None]
  - INSOMNIA [None]
  - LIVER FUNCTION TEST ABNORMAL [None]
  - MUSCULOSKELETAL CHEST PAIN [None]
  - NOCTURIA [None]
  - NON-CARDIAC CHEST PAIN [None]
  - NUCLEAR MAGNETIC RESONANCE IMAGING ABNORMAL [None]
  - OCCULT BLOOD POSITIVE [None]
  - OESTROGEN RECEPTOR ASSAY POSITIVE [None]
  - OSTEOPENIA [None]
  - OSTEOPOROSIS [None]
  - PARONYCHIA [None]
  - POLLAKIURIA [None]
  - POLYPECTOMY [None]
  - PROGESTERONE RECEPTOR ASSAY POSITIVE [None]
  - PRURITUS [None]
  - PULMONARY CONGESTION [None]
  - RADIATION OESOPHAGITIS [None]
  - RADIOTHERAPY [None]
  - RAYNAUD'S PHENOMENON [None]
  - REFLUX LARYNGITIS [None]
  - SCAR [None]
  - SINUS DISORDER [None]
  - SINUS TACHYCARDIA [None]
  - SKIN HYPERPIGMENTATION [None]
  - SKIN LESION [None]
  - SMEAR CERVIX ABNORMAL [None]
  - TINNITUS [None]
  - VAGINAL INFECTION [None]
